FAERS Safety Report 9115992 (Version 1)
Quarter: 2013Q1

REPORT INFORMATION
  Report Type: Report from Study
  Country: PE (occurrence: PE)
  Receive Date: 20130225
  Receipt Date: 20130225
  Transmission Date: 20140127
  Serious: Yes (Death)
  Sender: FDA-Public Use
  Company Number: PE-ASTRAZENECA-2013SE11479

PATIENT
  Age: 33125 Day
  Sex: Male

DRUGS (1)
  1. ATACAND PLUS [Suspect]
     Indication: HYPERTENSION
     Dosage: 16 + 12.5 MG DAILY
     Route: 048
     Dates: start: 20100913

REACTIONS (1)
  - Death [Fatal]
